FAERS Safety Report 6282818-6 (Version None)
Quarter: 2009Q3

REPORT INFORMATION
  Report Type: 
  Country: None (occurrence: None)
  Receive Date: 20090724
  Receipt Date: 20090715
  Transmission Date: 20100115
  Serious: Yes (Life-Threatening, Hospitalization)
  Sender: FDA-Public Use
  Company Number: DE-BRISTOL-MYERS SQUIBB COMPANY-14679237

PATIENT
  Age: 62 Year
  Sex: Female
  Weight: 54 kg

DRUGS (2)
  1. MITOMYCIN MEDAC [Suspect]
     Indication: BREAST CANCER METASTATIC
     Dosage: FORMULATION: INJECTION. TOTAL CYCLES:4
     Route: 042
     Dates: start: 20081201, end: 20090301
  2. VINORELBINE [Concomitant]
     Route: 042
     Dates: start: 20081201, end: 20090301

REACTIONS (3)
  - PNEUMONITIS [None]
  - RESPIRATORY FAILURE [None]
  - THROMBOCYTOPENIA [None]
